FAERS Safety Report 11999143 (Version 1)
Quarter: 2016Q1

REPORT INFORMATION
  Report Type: Report from Study
  Country: JP (occurrence: JP)
  Receive Date: 20160204
  Receipt Date: 20160204
  Transmission Date: 20160526
  Serious: Yes (Other)
  Sender: FDA-Public Use
  Company Number: JP-ORION CORPORATION ORION PHARMA-ENT 2009-0096

PATIENT
  Age: 67 Year
  Sex: Male
  Weight: 52 kg

DRUGS (13)
  1. SYMMETREL [Concomitant]
     Active Substance: AMANTADINE HYDROCHLORIDE
     Route: 065
     Dates: start: 20090317, end: 20090324
  2. MADOPAR [Concomitant]
     Active Substance: BENSERAZIDE HYDROCHLORIDE\LEVODOPA
     Dosage: DOSE DECREASED
     Route: 065
     Dates: start: 20090615
  3. COMTAN [Suspect]
     Active Substance: ENTACAPONE
     Indication: PARKINSON^S DISEASE
     Route: 048
     Dates: start: 20090324, end: 20090330
  4. COMTAN [Suspect]
     Active Substance: ENTACAPONE
     Route: 048
     Dates: start: 20090331, end: 20090501
  5. PERMAX [Concomitant]
     Active Substance: PERGOLIDE
     Route: 065
     Dates: start: 20090317
  6. MADOPAR [Concomitant]
     Active Substance: BENSERAZIDE HYDROCHLORIDE\LEVODOPA
     Route: 065
     Dates: start: 20090317
  7. PERMAX [Concomitant]
     Active Substance: PERGOLIDE
     Dosage: DOSE DECREASED
     Route: 065
     Dates: start: 20090615
  8. NORVASC [Concomitant]
     Active Substance: AMLODIPINE BESYLATE
     Route: 065
     Dates: start: 20090324
  9. FP [Concomitant]
     Active Substance: SELEGILINE HYDROCHLORIDE
     Route: 065
     Dates: start: 20090317, end: 20090402
  10. FP [Concomitant]
     Active Substance: SELEGILINE HYDROCHLORIDE
     Dosage: DOSE DECREASED
     Route: 065
     Dates: start: 20090615
  11. PERMAX [Concomitant]
     Active Substance: PERGOLIDE
     Dosage: DOSE INCREASED
     Route: 065
     Dates: start: 20090512
  12. LENDORMIN [Concomitant]
     Active Substance: BROTIZOLAM
     Route: 065
     Dates: start: 20090423
  13. COMTAN [Suspect]
     Active Substance: ENTACAPONE
     Route: 048
     Dates: start: 20090502, end: 20090509

REACTIONS (7)
  - Libido increased [Recovered/Resolved]
  - Somnolence [Unknown]
  - Speech disorder [Unknown]
  - Restlessness [Unknown]
  - Hallucination [Recovered/Resolved]
  - Dyskinesia [Recovering/Resolving]
  - Hypokinesia [Recovering/Resolving]

NARRATIVE: CASE EVENT DATE: 20090331
